FAERS Safety Report 5215250-4 (Version None)
Quarter: 2007Q1

REPORT INFORMATION
  Report Type: 
  Country: None (occurrence: None)
  Receive Date: 20070117
  Receipt Date: 20070109
  Transmission Date: 20070707
  Serious: Yes (Disabling)
  Sender: FDA-Public Use
  Company Number: GXKR2007GB00630

PATIENT
  Sex: Male
  Weight: 62 kg

DRUGS (6)
  1. ALLOPURINOL [Suspect]
     Indication: GOUT
  2. COZAAR [Suspect]
     Indication: VENTRICULAR DYSFUNCTION
     Dosage: 25 MG, QD, ORAL
     Route: 048
     Dates: start: 20060519, end: 20060809
  3. ASPIRIN [Concomitant]
  4. LANOXIN [Concomitant]
  5. PERINDOPRIL ERBUMINE [Concomitant]
  6. RAMIPRIL [Concomitant]

REACTIONS (10)
  - BLOOD PRESSURE SYSTOLIC INCREASED [None]
  - DRUG INEFFECTIVE [None]
  - DRUG INTERACTION [None]
  - DYSPNOEA [None]
  - EYE PAIN [None]
  - MUSCULOSKELETAL STIFFNESS [None]
  - NO THERAPEUTIC RESPONSE [None]
  - OSTEOARTHRITIS [None]
  - PAIN IN EXTREMITY [None]
  - VENTRICULAR DYSFUNCTION [None]
